FAERS Safety Report 9847485 (Version 1)
Quarter: 2014Q1

REPORT INFORMATION
  Report Type: Report from Study
  Country: ID (occurrence: ID)
  Receive Date: 20140127
  Receipt Date: 20140127
  Transmission Date: 20141002
  Serious: Yes (Death)
  Sender: FDA-Public Use
  Company Number: ID-ROCHE-1338860

PATIENT
  Age: 52 Year
  Sex: Male

DRUGS (1)
  1. AVASTIN [Suspect]
     Indication: LUNG NEOPLASM MALIGNANT
     Route: 065
     Dates: end: 20100601

REACTIONS (2)
  - Death [Fatal]
  - Off label use [Unknown]
